FAERS Safety Report 11549533 (Version 1)
Quarter: 2015Q3

REPORT INFORMATION
  Report Type: Spontaneous
  Country: US (occurrence: US)
  Receive Date: 20150924
  Receipt Date: 20150924
  Transmission Date: 20151125
  Serious: No
  Sender: FDA-Public Use
  Company Number: US-INCYTE CORPORATION-2015IN002559

PATIENT
  Age: 12 Year
  Sex: Male
  Weight: 44.5 kg

DRUGS (19)
  1. DECADRON [Concomitant]
     Active Substance: DEXAMETHASONE
  2. VALCYTE [Concomitant]
     Active Substance: VALGANCICLOVIR HYDROCHLORIDE
  3. DEXAMETHASONE. [Concomitant]
     Active Substance: DEXAMETHASONE
  4. GABAPENTIN. [Concomitant]
     Active Substance: GABAPENTIN
  5. PREVACID [Concomitant]
     Active Substance: LANSOPRAZOLE
  6. ETOPOSIDE. [Concomitant]
     Active Substance: ETOPOSIDE
  7. JAKAFI [Suspect]
     Active Substance: RUXOLITINIB
     Indication: ACUTE LYMPHOCYTIC LEUKAEMIA
     Dosage: 70 MG, BID
     Route: 048
     Dates: start: 20150415, end: 20150428
  8. VALTREX [Concomitant]
     Active Substance: VALACYCLOVIR HYDROCHLORIDE
  9. K PHOS NEUTRAL [Concomitant]
     Active Substance: POTASSIUM PHOSPHATE, MONOBASIC\SODIUM PHOSPHATE, DIBASIC, ANHYDROUS\SODIUM PHOSPHATE, MONOBASIC, MONOHYDRATE
  10. AMLODIPINE [Concomitant]
     Active Substance: AMLODIPINE BESYLATE
  11. NORVASC [Concomitant]
     Active Substance: AMLODIPINE BESYLATE
  12. MYCAMINE [Concomitant]
     Active Substance: MICAFUNGIN SODIUM
  13. POTASSIUM CHLORIDE. [Concomitant]
     Active Substance: POTASSIUM CHLORIDE
  14. CYCLOPHOSPHAMIDE. [Concomitant]
     Active Substance: CYCLOPHOSPHAMIDE
  15. LEXAPRO [Concomitant]
     Active Substance: ESCITALOPRAM OXALATE
  16. CLONIDINE. [Concomitant]
     Active Substance: CLONIDINE
  17. PENTAMIDINE [Concomitant]
     Active Substance: PENTAMIDINE
  18. ACETAMINOPHEN. [Concomitant]
     Active Substance: ACETAMINOPHEN
  19. MICAFUNGIN [Concomitant]
     Active Substance: MICAFUNGIN

REACTIONS (4)
  - Disease progression [Not Recovered/Not Resolved]
  - Medication error [Unknown]
  - Blast cell count increased [Not Recovered/Not Resolved]
  - Off label use [Unknown]

NARRATIVE: CASE EVENT DATE: 20150408
